FAERS Safety Report 17363671 (Version 2)
Quarter: 2020Q1

REPORT INFORMATION
  Report Type: Spontaneous
  Country: DK (occurrence: DK)
  Receive Date: 20200203
  Receipt Date: 20200207
  Transmission Date: 20200409
  Serious: No
  Sender: FDA-Public Use
  Company Number: DK-ELI_LILLY_AND_COMPANY-DK201303009472

PATIENT
  Age: 33 Year
  Sex: Male
  Weight: 90 kg

DRUGS (15)
  1. SEROQUEL [Suspect]
     Active Substance: QUETIAPINE FUMARATE
     Indication: MENTAL DISORDER
     Dosage: 500 MILLIGRAM
     Route: 048
     Dates: start: 20050310
  2. CLOZAPIN HEXAL [Suspect]
     Active Substance: CLOZAPINE
     Dosage: 250 MG, UNKNOWN
     Route: 048
     Dates: start: 20170215, end: 20170914
  3. DELEPSINE [Concomitant]
     Active Substance: VALPROATE SODIUM
     Indication: MANIA
     Dosage: DOSIS: 2,5 ML MORGEN OG 4 ML AFTEN.STYRKE: 200 MG/ML.
     Route: 048
     Dates: start: 20150717
  4. ZYPREXA [Suspect]
     Active Substance: OLANZAPINE
     Indication: PRODUCT USED FOR UNKNOWN INDICATION
     Dosage: 1 DF, UNKNOWN
     Route: 048
     Dates: end: 2013
  5. RISPERDAL [Suspect]
     Active Substance: RISPERIDONE
     Indication: PRODUCT USED FOR UNKNOWN INDICATION
     Dosage: UNK, UNKNOWN
     Route: 065
     Dates: end: 2013
  6. ABILIFY [Concomitant]
     Active Substance: ARIPIPRAZOLE
     Indication: PRODUCT USED FOR UNKNOWN INDICATION
     Dosage: UNK, UNKNOWN
     Route: 065
     Dates: start: 2014
  7. ESCITALOPRAM [Concomitant]
     Active Substance: ESCITALOPRAM OXALATE
     Indication: PRODUCT USED FOR UNKNOWN INDICATION
     Dosage: UNK, UNKNOWN
     Route: 065
  8. CLOZAPIN HEXAL [Suspect]
     Active Substance: CLOZAPINE
     Indication: PSYCHOTIC DISORDER
     Dosage: 350 MG, UNKNOWN
     Route: 048
  9. CLOZAPIN HEXAL [Suspect]
     Active Substance: CLOZAPINE
     Dosage: 200 MG, UNKNOWN
     Route: 048
     Dates: start: 20170914
  10. ZELDOX [Suspect]
     Active Substance: ZIPRASIDONE
     Indication: MENTAL DISORDER
     Dosage: STYRKE: 20 MG
     Route: 048
     Dates: start: 2010, end: 2013
  11. CLOZAPIN HEXAL [Suspect]
     Active Substance: CLOZAPINE
     Dosage: DOSIS: TIDLIGERE 350 MG, 15FEB-14SEP2017 250 MG X 1 DGL, FRA 14SEP2017 200 MG X 1 DGL
     Route: 048
  12. CIPRALEX MELTZ [ESCITALOPRAM OXALATE] [Concomitant]
     Indication: PRODUCT USED FOR UNKNOWN INDICATION
  13. ABILIFY [Concomitant]
     Active Substance: ARIPIPRAZOLE
     Dosage: UNK
  14. DELEPSINE [Concomitant]
     Active Substance: VALPROATE SODIUM
     Indication: MOOD SWINGS
     Dosage: UNK, UNKNOWN
     Route: 048
     Dates: start: 20150202, end: 20170614
  15. RISPERDAL [Suspect]
     Active Substance: RISPERIDONE
     Dosage: UNK
     Dates: end: 2013

REACTIONS (3)
  - Erectile dysfunction [Not Recovered/Not Resolved]
  - Sperm concentration decreased [Not Recovered/Not Resolved]
  - Feminisation acquired [Not Recovered/Not Resolved]
